FAERS Safety Report 4926036-X (Version None)
Quarter: 2006Q1

REPORT INFORMATION
  Report Type: 
  Country: None (occurrence: None)
  Receive Date: 20060228
  Receipt Date: 20050801
  Transmission Date: 20060701
  Serious: No
  Sender: FDA-Public Use
  Company Number: US-GLAXOSMITHKLINE-A0568493A

PATIENT
  Age: 54 Year
  Sex: Female

DRUGS (4)
  1. LAMICTAL [Suspect]
     Indication: BIPOLAR DISORDER
     Dosage: 150MG PER DAY
     Route: 048
     Dates: start: 20050401
  2. LITHIUM CARBONATE [Suspect]
     Route: 048
  3. BUPROPION HCL [Concomitant]
  4. CYMBALTA [Concomitant]

REACTIONS (2)
  - ALOPECIA [None]
  - SOMNOLENCE [None]
